FAERS Safety Report 8054671-1 (Version None)
Quarter: 2012Q1

REPORT INFORMATION
  Report Type: 
  Country: None (occurrence: None)
  Receive Date: 20120119
  Receipt Date: 20120112
  Transmission Date: 20120608
  Serious: No
  Sender: FDA-Public Use
  Company Number: US-PFIZER INC-2012004855

PATIENT
  Sex: Female
  Weight: 58.957 kg

DRUGS (1)
  1. LYRICA [Suspect]
     Indication: EYE LASER SURGERY
     Dosage: 150 MG, 1X/DAY
     Route: 048
     Dates: start: 20120105, end: 20120106

REACTIONS (5)
  - VOMITING [None]
  - ASTHENIA [None]
  - NAUSEA [None]
  - DIZZINESS [None]
  - CHEST DISCOMFORT [None]
